FAERS Safety Report 16463197 (Version 4)
Quarter: 2019Q3

REPORT INFORMATION
  Report Type: Spontaneous
  Country: US (occurrence: US)
  Receive Date: 20190621
  Receipt Date: 20190917
  Transmission Date: 20191004
  Serious: Yes (Other)
  Sender: FDA-Public Use
  Company Number: US-PFIZER INC-2016301555

PATIENT
  Age: 76 Year
  Sex: Male

DRUGS (13)
  1. IBUPROFEN. [Concomitant]
     Active Substance: IBUPROFEN
     Indication: ARTHRITIS
     Dosage: 400 MG, AS NEEDED
  2. LYRICA [Suspect]
     Active Substance: PREGABALIN
     Indication: OPTIC NEUROPATHY
     Dosage: 125 MG, DAILY (TWICE DAILY 75 MG AT NIGHT 50 MG AT NOON)
  3. LYRICA [Suspect]
     Active Substance: PREGABALIN
     Dosage: 50 MG, 1X/DAY (1 PILL AT NIGHT)
  4. LUTEIN ZEAXANTHIN [Concomitant]
     Indication: EYE DISORDER
     Dosage: 5 MG, 1X/DAY (DAILY IN AM)
  5. PROVENTIL [Concomitant]
     Active Substance: ALBUTEROL
     Indication: ASTHMA
     Dosage: UNK, AS NEEDED (1OR 2 PUFFS AS NEEDED)
  6. LYRICA [Suspect]
     Active Substance: PREGABALIN
     Indication: NEUROPATHY PERIPHERAL
     Dosage: 75 MG, 3X/DAY
     Route: 048
  7. BABY ASPIRIN [Concomitant]
     Active Substance: ASPIRIN
     Dosage: 81 MG, 1X/DAY (DAILY IN AM)
  8. KETOKONAZOL [Concomitant]
     Active Substance: KETOCONAZOLE
     Indication: PRURITUS
     Dosage: 2 %, UNK (USE 2-3 TIMES PER WEEK)
  9. BISOPROLOL FUMARATE. [Concomitant]
     Active Substance: BISOPROLOL FUMARATE
     Indication: BLOOD PRESSURE ABNORMAL
     Dosage: 5 MG, 1X/DAY (IN AM)
  10. SODIUM CHLORIDE. [Concomitant]
     Active Substance: SODIUM CHLORIDE
     Indication: NASAL CONGESTION
     Dosage: 65 %, AS NEEDED
     Route: 045
  11. AMOXICILLIN. [Concomitant]
     Active Substance: AMOXICILLIN
     Indication: HIP ARTHROPLASTY
     Dosage: 500 MG, UNK (1 HOUR BEFORE DENTAL, 4 CAPSULES EACH TIME)
  12. LYRICA [Suspect]
     Active Substance: PREGABALIN
     Indication: OPTIC NERVE DISORDER
     Dosage: 75 MG, 2X/DAY
     Route: 048
  13. OMEPRAZOLE. [Concomitant]
     Active Substance: OMEPRAZOLE
     Dosage: 20 MG, AS NEEDED (1 OR 2 CAPSULES DAILY AS NEEDED)

REACTIONS (4)
  - Somnolence [Unknown]
  - Somnambulism [Unknown]
  - Confusional state [Unknown]
  - Blindness [Unknown]
